FAERS Safety Report 4364634-5 (Version None)
Quarter: 2004Q2

REPORT INFORMATION
  Report Type: 
  Country: None (occurrence: None)
  Receive Date: 20040521
  Receipt Date: 20040417
  Transmission Date: 20050107
  Serious: Yes (Other)
  Sender: FDA-Public Use
  Company Number: KII-2004-0010394

PATIENT
  Age: 66 Year
  Sex: Male

DRUGS (2)
  1. MORPHINE SULFATE [Suspect]
     Dosage: BID, ORAL
     Route: 048
     Dates: start: 20040401
  2. CYCLOBENZAPRINE HCL [Suspect]
     Dosage: TID, ORAL
     Route: 048
     Dates: start: 20040401

REACTIONS (5)
  - BODY TEMPERATURE INCREASED [None]
  - HYPOTENSION [None]
  - LETHARGY [None]
  - OVERDOSE [None]
  - OXYGEN SATURATION DECREASED [None]
